FAERS Safety Report 20750901 (Version 2)
Quarter: 2022Q2

REPORT INFORMATION
  Report Type: Report from Study
  Country: CA (occurrence: None)
  Receive Date: 20220426
  Receipt Date: 20220429
  Transmission Date: 20220721
  Serious: Yes (Death)
  Sender: FDA-Public Use
  Company Number: CA-ROCHE-3082253

PATIENT
  Age: 77 Year
  Sex: Female
  Weight: 37.3 kg

DRUGS (9)
  1. RUNIMOTAMAB [Suspect]
     Active Substance: RUNIMOTAMAB
     Indication: Gastric cancer
     Dosage: DATE OF MOST RECENT DOSE OF BTRC4017A (ANTI-HER2/CD3 BISPECIFIC ANTIBODY) PRIOR TO AE AND SAE ONSET:
     Route: 042
     Dates: start: 20211216
  2. TRASTUZUMAB [Suspect]
     Active Substance: TRASTUZUMAB
     Indication: Gastric cancer
     Dosage: DATE OF MOST RECENT DOSE OF TOCILIZUMAB (247.2 MG) PRIOR TO AE AND SAE ONSET: 06/JAN/2022
     Route: 041
     Dates: start: 20211215
  3. CALCIUM [Concomitant]
     Active Substance: CALCIUM
     Dates: start: 202112
  4. METOCLOPRAMIDE HYDROCHLORIDE [Concomitant]
     Active Substance: METOCLOPRAMIDE HYDROCHLORIDE
     Indication: Nausea
     Route: 048
     Dates: start: 20111209
  5. PANTOPRAZOLE [Concomitant]
     Active Substance: PANTOPRAZOLE
     Indication: Gastrooesophageal reflux disease
     Route: 048
     Dates: start: 201811
  6. SENOKOT [Concomitant]
     Active Substance: SENNOSIDES
     Indication: Constipation
     Route: 048
     Dates: start: 202012
  7. SYSTANE (HYPROMELLOSE 2910 (4000 MPA.S)) [Concomitant]
     Active Substance: HYPROMELLOSE 2910 (4000 MPA.S)
     Indication: Keratitis
     Dates: start: 202112
  8. TYLENOL [Concomitant]
     Active Substance: ACETAMINOPHEN
     Indication: Headache
     Dates: start: 202110
  9. VENOFER [Concomitant]
     Active Substance: IRON SUCROSE
     Route: 048
     Dates: start: 202111

REACTIONS (1)
  - Malignant neoplasm progression [Fatal]
